FAERS Safety Report 9104320 (Version 2)
Quarter: 2013Q1

REPORT INFORMATION
  Report Type: Spontaneous
  Country: US (occurrence: US)
  Receive Date: 20130220
  Receipt Date: 20130228
  Transmission Date: 20140127
  Serious: Yes (Congenital Anomaly, Other)
  Sender: FDA-Public Use
  Company Number: US-RANBAXY-2013US-65268

PATIENT
  Sex: Female
  Weight: 47.62 kg

DRUGS (3)
  1. ATORVASTATIN [Suspect]
     Indication: TRANSIENT ISCHAEMIC ATTACK
     Dosage: UNK
     Route: 048
     Dates: start: 20111231
  2. PLAVIX [Suspect]
     Indication: TRANSIENT ISCHAEMIC ATTACK
     Dosage: UNK
     Route: 065
  3. PROTONIX [Suspect]
     Indication: PRODUCT USED FOR UNKNOWN INDICATION
     Dosage: UNK
     Route: 065

REACTIONS (8)
  - Haemorrhoids [Unknown]
  - Vaginal haemorrhage [Unknown]
  - Vulvovaginal pruritus [Unknown]
  - Vaginal operation [Unknown]
  - Haemorrhage [Unknown]
  - Amnesia [Unknown]
  - Pruritus [Unknown]
  - Off label use [Unknown]
